FAERS Safety Report 8367452-6 (Version None)
Quarter: 2012Q2

REPORT INFORMATION
  Report Type: 
  Country: None (occurrence: None)
  Receive Date: 20120517
  Receipt Date: 20120213
  Transmission Date: 20120825
  Serious: No
  Sender: FDA-Public Use
  Company Number: US-GLAXOSMITHKLINE-A0965694A

PATIENT
  Age: 63 Year
  Sex: Male

DRUGS (8)
  1. UNSPECIFIED MEDICATION [Concomitant]
  2. THYROID MEDICATION [Concomitant]
  3. METOPROLOL [Concomitant]
  4. LUNESTA [Concomitant]
  5. FLOMAX [Concomitant]
  6. VOTRIENT [Suspect]
     Indication: RENAL CELL CARCINOMA
     Dosage: 200MG VARIABLE DOSE
     Route: 048
     Dates: start: 20110401
  7. STOOL SOFTENER [Concomitant]
  8. CALCIUM [Concomitant]

REACTIONS (5)
  - NAUSEA [None]
  - VOMITING [None]
  - BACK PAIN [None]
  - HEADACHE [None]
  - ASTHENIA [None]
